FAERS Safety Report 7891036-7 (Version None)
Quarter: 2011Q4

REPORT INFORMATION
  Report Type: 
  Country: None (occurrence: None)
  Receive Date: 20111103
  Receipt Date: 20110728
  Transmission Date: 20120403
  Serious: Yes (Other)
  Sender: FDA-Public Use
  Company Number: US-AMGEN-USASP2011034080

PATIENT
  Age: 52 Year
  Sex: Female

DRUGS (3)
  1. ENBREL [Suspect]
     Indication: PSORIATIC ARTHROPATHY
  2. METHOTREXATE [Concomitant]
     Dosage: UNK
  3. ENBREL [Suspect]
     Indication: PSORIASIS
     Dosage: 50 MG, QWK
     Dates: start: 20011112, end: 20100801

REACTIONS (9)
  - UPPER RESPIRATORY TRACT INFECTION [None]
  - PUSTULAR PSORIASIS [None]
  - PSORIATIC ARTHROPATHY [None]
  - DRUG HYPERSENSITIVITY [None]
  - DEHYDRATION [None]
  - WEIGHT DECREASED [None]
  - SINUSITIS [None]
  - OESOPHAGEAL CANDIDIASIS [None]
  - FATIGUE [None]
